FAERS Safety Report 4753833-6 (Version None)
Quarter: 2005Q3

REPORT INFORMATION
  Report Type: 
  Country: None (occurrence: None)
  Receive Date: 20050826
  Receipt Date: 20050823
  Transmission Date: 20060218
  Serious: Yes (Hospitalization)
  Sender: FDA-Public Use
  Company Number: UK124411

PATIENT
  Age: 40 Year
  Sex: Male
  Weight: 75.5 kg

DRUGS (3)
  1. NAVELBINE [Suspect]
     Indication: HODGKIN'S DISEASE
     Dosage: 65MG SINGLE DOSE
     Route: 042
     Dates: start: 20050322, end: 20050322
  2. NEUPOGEN [Suspect]
     Indication: PERIPHERAL BLOOD STEM CELL APHERESIS
     Dosage: 300MG TWICE PER DAY
     Route: 058
     Dates: start: 20050325, end: 20050401
  3. PARACETAMOL [Concomitant]
     Route: 042
     Dates: start: 20050327, end: 20050401

REACTIONS (3)
  - ABDOMINAL PAIN [None]
  - CONSTIPATION [None]
  - FLATULENCE [None]
